FAERS Safety Report 16219089 (Version 5)
Quarter: 2020Q1

REPORT INFORMATION
  Report Type: Spontaneous
  Country: MX (occurrence: MX)
  Receive Date: 20190419
  Receipt Date: 20200207
  Transmission Date: 20200409
  Serious: Yes (Other)
  Sender: FDA-Public Use
  Company Number: MX-ANIPHARMA-2019-MX-000006

PATIENT
  Age: 60 Year
  Sex: Female
  Weight: 79 kg

DRUGS (7)
  1. NEURALIN [DEXAMETHASONE] [Interacting]
     Active Substance: DEXAMETHASONE
     Dosage: 1 APPLICATION EVERY 24 HOURS
     Route: 030
     Dates: start: 201812
  2. NO MATCH [Concomitant]
     Active Substance: UNSPECIFIED INGREDIENT
     Dosage: DAILY
     Route: 048
     Dates: start: 2018, end: 20190411
  3. NEUROBION [Concomitant]
     Active Substance: CYANOCOBALAMIN\PYRIDOXINE\THIAMINE
     Dosage: DAILY
     Route: 048
     Dates: start: 201812
  4. NEURALIN [HYDROXOCOBALAMIN\LIDOCAINE\PYRIDOXINE\THIAMINE] [Suspect]
     Active Substance: HYDROXOCOBALAMIN\LIDOCAINE\PYRIDOXINE\THIAMINE
  5. PRAVASTATIN. [Concomitant]
     Active Substance: PRAVASTATIN
     Dosage: DAILY
     Route: 048
     Dates: start: 201809
  6. CANDESARTAN HCT [Suspect]
     Active Substance: CANDESARTAN CILEXETIL\HYDROCHLOROTHIAZIDE
     Indication: HYPERTENSION
     Dosage: 1 DOSAGE FORM EVERY DAY (16 / 12.5 MG)
     Route: 048
     Dates: start: 2017
  7. NO MATCH [Concomitant]
     Active Substance: UNSPECIFIED INGREDIENT
     Dosage: DAILY
     Route: 048
     Dates: start: 2017, end: 20190411

REACTIONS (12)
  - Dysgeusia [Recovered/Resolved]
  - Headache [Recovered/Resolved]
  - Drug interaction [Not Recovered/Not Resolved]
  - Dizziness [Recovered/Resolved]
  - Blood glucose increased [Recovered/Resolved]
  - Intervertebral disc protrusion [Unknown]
  - Nausea [Recovered/Resolved]
  - Weight increased [Unknown]
  - Hyperhidrosis [Recovered/Resolved]
  - Hepatic steatosis [Unknown]
  - Weight decreased [Not Recovered/Not Resolved]
  - Malaise [Recovered/Resolved]

NARRATIVE: CASE EVENT DATE: 2017
